FAERS Safety Report 20850761 (Version 1)
Quarter: 2022Q2

REPORT INFORMATION
  Report Type: Other
  Country: CA (occurrence: CA)
  Receive Date: 20220519
  Receipt Date: 20220519
  Transmission Date: 20220720
  Serious: Yes (Other)
  Sender: FDA-Public Use
  Company Number: CA-ASTELLAS-2022US017993

PATIENT
  Age: 13 Year
  Sex: Female
  Weight: 36 kg

DRUGS (9)
  1. TACROLIMUS [Suspect]
     Active Substance: TACROLIMUS
     Indication: Immunosuppression
     Dosage: UNK UNK, TWICE DAILY
     Route: 048
  2. THYMOCYTE IMMUNE GLOBULIN NOS [Suspect]
     Active Substance: THYMOCYTE IMMUNE GLOBULIN NOS
     Indication: Immunosuppression
     Route: 065
  3. CYTOGAM [Suspect]
     Active Substance: HUMAN CYTOMEGALOVIRUS IMMUNE GLOBULIN
     Indication: Immunosuppression
     Dosage: UNK UNK, UNKNOWN FREQ. (SOLUTION)
     Route: 042
  4. MYCOPHENOLATE MOFETIL [Suspect]
     Active Substance: MYCOPHENOLATE MOFETIL
     Indication: Immunosuppression
     Dosage: UNK UNK, TWICE DAILY
     Route: 065
  5. PREDNISONE [Suspect]
     Active Substance: PREDNISONE
     Indication: Immunosuppression
     Dosage: UNK UNK, UNKNOWN FREQ.
     Route: 065
  6. RITUXAN [Suspect]
     Active Substance: RITUXIMAB
     Indication: Immunosuppression
     Dosage: 2 DF, UNKNOWN FREQ. (SOLUTION)
     Route: 042
  7. SOLIRIS [Suspect]
     Active Substance: ECULIZUMAB
     Indication: Transplant rejection
     Dosage: 600 MG, OTHER (SOLUTION; SINGLE USE 300 MG/30ML)
     Route: 042
  8. SOLIRIS [Suspect]
     Active Substance: ECULIZUMAB
     Dosage: 300 MG, OTHER (SOLUTION; SINGLE USE, 300 MG/30ML)
     Route: 042
  9. HUMAN IMMUNOGLOBULIN G [Concomitant]
     Active Substance: HUMAN IMMUNOGLOBULIN G
     Indication: Product used for unknown indication
     Dosage: UNK UNK, UNKNOWN FREQ. (SOLUTION)
     Route: 042

REACTIONS (3)
  - Nephrectomy [Unknown]
  - Polyomavirus-associated nephropathy [Unknown]
  - Renal transplant failure [Unknown]
